FAERS Safety Report 17618046 (Version 1)
Quarter: 2020Q2

REPORT INFORMATION
  Report Type: Spontaneous
  Country: CA (occurrence: CA)
  Receive Date: 20200402
  Receipt Date: 20200402
  Transmission Date: 20200713
  Serious: Yes (Other)
  Sender: FDA-Public Use
  Company Number: CA-TEVA-2020-CA-1216944

PATIENT
  Age: 82 Year
  Sex: Male

DRUGS (4)
  1. ATORVASTATIN CALCIUM. [Suspect]
     Active Substance: ATORVASTATIN CALCIUM
     Indication: BLOOD PRESSURE ABNORMAL
     Route: 065
  2. RAMIPRIL. [Concomitant]
     Active Substance: RAMIPRIL
  3. SYNTHROID [Concomitant]
     Active Substance: LEVOTHYROXINE SODIUM
  4. VERAPAMIL [Concomitant]
     Active Substance: VERAPAMIL HYDROCHLORIDE

REACTIONS (4)
  - Product use in unapproved indication [Not Recovered/Not Resolved]
  - Amnesia [Not Recovered/Not Resolved]
  - Mental impairment [Not Recovered/Not Resolved]
  - Off label use [Not Recovered/Not Resolved]
